FAERS Safety Report 7788150-3 (Version None)
Quarter: 2011Q3

REPORT INFORMATION
  Report Type: 
  Country: None (occurrence: None)
  Receive Date: 20110929
  Receipt Date: 20110929
  Transmission Date: 20111222
  Serious: No
  Sender: FDA-Public Use
  Company Number: None

PATIENT
  Age: 77 Year
  Sex: Female

DRUGS (6)
  1. ANASTROZOLE [Concomitant]
  2. NIFEDIPINE [Concomitant]
  3. FUROSEMIDE [Concomitant]
  4. POTASSIUM [Concomitant]
  5. LETAIRIS [Suspect]
     Indication: PULMONARY HYPERTENSION
     Dosage: 5MG DAILY ORALLY
     Route: 048
     Dates: start: 20110501, end: 20110901
  6. GLIPIZIDE [Concomitant]

REACTIONS (2)
  - FACIAL PAIN [None]
  - SINUSITIS [None]
